FAERS Safety Report 6698409-9 (Version None)
Quarter: 2010Q2

REPORT INFORMATION
  Report Type: 
  Country: None (occurrence: None)
  Receive Date: 20100426
  Receipt Date: 20100426
  Transmission Date: 20101027
  Serious: Yes (Life-Threatening)
  Sender: FDA-Public Use
  Company Number: None

PATIENT
  Age: 63 Year
  Sex: Male
  Weight: 119.7496 kg

DRUGS (1)
  1. JANUVIA [Suspect]
     Indication: DIABETES MELLITUS
     Dosage: 100 MG. PER DAY 1 PO
     Route: 048
     Dates: start: 20091105, end: 20100419

REACTIONS (4)
  - DYSPNOEA [None]
  - RALES [None]
  - SPUTUM INCREASED [None]
  - UPPER RESPIRATORY TRACT INFECTION [None]
